FAERS Safety Report 17687882 (Version 1)
Quarter: 2020Q2

REPORT INFORMATION
  Report Type: Spontaneous
  Country: PY (occurrence: PY)
  Receive Date: 20200421
  Receipt Date: 20200421
  Transmission Date: 20200714
  Serious: Yes (Death, Other)
  Sender: FDA-Public Use
  Company Number: PY-ROCHE-2577891

PATIENT
  Age: 50 Year
  Sex: Male
  Weight: 75 kg

DRUGS (5)
  1. ACTEMRA [Suspect]
     Active Substance: TOCILIZUMAB
     Indication: CORONAVIRUS INFECTION
     Dosage: 600 MG IN 500 ML INFUSED IN ONE HOUR
     Route: 042
     Dates: start: 20200331
  2. AZITHROMYCIN ANHYDROUS. [Concomitant]
     Active Substance: AZITHROMYCIN ANHYDROUS
  3. HYDROXYCHLOROQUINE [Concomitant]
     Active Substance: HYDROXYCHLOROQUINE
  4. PIPERACILLIN. [Concomitant]
     Active Substance: PIPERACILLIN SODIUM
  5. CLEXANE [Concomitant]
     Active Substance: ENOXAPARIN SODIUM

REACTIONS (6)
  - Mechanical ventilation [Unknown]
  - Endotracheal intubation [Unknown]
  - Product use in unapproved indication [Unknown]
  - Acute respiratory failure [Fatal]
  - Coronavirus infection [Fatal]
  - Off label use [Unknown]

NARRATIVE: CASE EVENT DATE: 20200331
